FAERS Safety Report 4926994-3 (Version None)
Quarter: 2006Q1

REPORT INFORMATION
  Report Type: 
  Country: None (occurrence: None)
  Receive Date: 20060228
  Receipt Date: 20050929
  Transmission Date: 20060701
  Serious: No
  Sender: FDA-Public Use
  Company Number: US-GLAXOSMITHKLINE-A0576410A

PATIENT
  Age: 53 Year
  Sex: Male
  Weight: 90.9 kg

DRUGS (3)
  1. LAMICTAL [Suspect]
     Indication: EPILEPSY
     Dosage: 225MG TWICE PER DAY
     Route: 048
     Dates: start: 20050701
  2. NAMENDA [Concomitant]
     Dosage: 10MG TWICE PER DAY
     Route: 048
  3. ARICEPT [Concomitant]
     Dosage: 10MG AT NIGHT
     Route: 048

REACTIONS (1)
  - VISION BLURRED [None]
